FAERS Safety Report 22995459 (Version 6)
Quarter: 2023Q4

REPORT INFORMATION
  Report Type: Report from Study
  Country: BR (occurrence: BR)
  Receive Date: 20230927
  Receipt Date: 20231208
  Transmission Date: 20240110
  Serious: Yes (Hospitalization)
  Sender: FDA-Public Use
  Company Number: BR-GENMAB-2023-01725

PATIENT
  Age: 64 Year
  Sex: Female
  Weight: 61.5 kg

DRUGS (9)
  1. EPCORITAMAB [Suspect]
     Active Substance: EPCORITAMAB
     Indication: Follicular lymphoma
     Dosage: PRIMING DOSE; C1, D1
     Route: 058
     Dates: start: 20230830, end: 20230830
  2. EPCORITAMAB [Suspect]
     Active Substance: EPCORITAMAB
     Dosage: INTERMEDIATE DOSE; C1, D8
     Route: 058
     Dates: start: 20230906, end: 20230906
  3. EPCORITAMAB [Suspect]
     Active Substance: EPCORITAMAB
     Dosage: FULL DOSE; C1, D15 AND 22
     Route: 058
     Dates: start: 20230913
  4. LENALIDOMIDE [Suspect]
     Active Substance: LENALIDOMIDE
     Indication: Follicular lymphoma
     Dosage: CYCLE 1-12, DAYS 1-12 OF A 28 DAYS CYCLE
     Route: 048
     Dates: start: 20230830
  5. RITUXIMAB [Suspect]
     Active Substance: RITUXIMAB
     Indication: Follicular lymphoma
     Dosage: CYCLE 1, DAY 1, 8, 15 AND 22
     Route: 042
     Dates: start: 20230830
  6. AMLODIPINE BESYLATE\OLMESARTAN MEDOXOMIL [Concomitant]
     Active Substance: AMLODIPINE BESYLATE\OLMESARTAN MEDOXOMIL
     Indication: Hypertension
     Dosage: 20/5 MG, EVERY 1 DAYS
     Dates: start: 199001
  7. INDAPAMIDE [Concomitant]
     Active Substance: INDAPAMIDE
     Indication: Hypertension
     Dosage: 1.5 MG, EVERY 1 DAYS
     Dates: start: 2016
  8. DIPYRONE [Concomitant]
     Active Substance: DIPYRONE
     Indication: Intervertebral disc protrusion
     Dosage: 2 G, EVERY 6 HOURS
     Dates: start: 202212
  9. BACLOFEN [Concomitant]
     Active Substance: BACLOFEN
     Indication: Intervertebral disc protrusion
     Dosage: 5 MG, EVERY 12 HOURS
     Dates: start: 20230626

REACTIONS (2)
  - Staphylococcal infection [Recovered/Resolved]
  - Staphylococcal infection [Recovered/Resolved]

NARRATIVE: CASE EVENT DATE: 20230914
